FAERS Safety Report 17594907 (Version 2)
Quarter: 2020Q2

REPORT INFORMATION
  Report Type: Spontaneous
  Country: CN (occurrence: CN)
  Receive Date: 20200328
  Receipt Date: 20200415
  Transmission Date: 20200713
  Serious: Yes (Hospitalization)
  Sender: FDA-Public Use
  Company Number: CN-ACCORD-177330

PATIENT
  Age: 87 Year
  Sex: Female

DRUGS (7)
  1. CYANOCOBALAMIN. [Concomitant]
     Active Substance: CYANOCOBALAMIN
     Indication: DIABETIC NEUROPATHY
  2. GLIMEPIRIDE. [Interacting]
     Active Substance: GLIMEPIRIDE
     Indication: TYPE 2 DIABETES MELLITUS
  3. SIMVASTATIN. [Interacting]
     Active Substance: SIMVASTATIN
     Indication: ARTERIOSCLEROSIS
  4. AMLODIPINE [Suspect]
     Active Substance: AMLODIPINE BESYLATE
     Indication: HYPERTENSION
  5. DONEPEZIL/DONEPEZIL HYDROCHLORIDE [Interacting]
     Active Substance: DONEPEZIL HYDROCHLORIDE
     Indication: DEMENTIA ALZHEIMER^S TYPE
  6. CALCIUM CARBONATE. [Concomitant]
     Active Substance: CALCIUM CARBONATE
     Indication: OSTEOPOROSIS
  7. ACETYLSALICYLIC ACID [Concomitant]
     Active Substance: ASPIRIN
     Indication: ARTERIOSCLEROSIS
     Dosage: ENTERIC-COATED

REACTIONS (11)
  - Fatigue [Recovered/Resolved]
  - Panic reaction [Recovered/Resolved]
  - Torticollis [Recovered/Resolved]
  - Extrapyramidal disorder [Recovered/Resolved]
  - Hyperhidrosis [Recovered/Resolved]
  - Gait disturbance [Recovered/Resolved]
  - Drug level increased [Unknown]
  - Dysarthria [Recovered/Resolved]
  - Tremor [Recovered/Resolved]
  - Drug interaction [Unknown]
  - Vomiting [Recovered/Resolved]
